FAERS Safety Report 9721745 (Version 3)
Quarter: 2014Q1

REPORT INFORMATION
  Report Type: Spontaneous
  Country: US (occurrence: US)
  Receive Date: 20131201
  Receipt Date: 20140228
  Transmission Date: 20141002
  Serious: No
  Sender: FDA-Public Use
  Company Number: US-ABBVIE-13P-163-1143784-00

PATIENT
  Age: 52 Year
  Sex: Male
  Weight: 99.88 kg

DRUGS (7)
  1. ANDROGEL [Suspect]
     Indication: BLOOD TESTOSTERONE DECREASED
     Dates: start: 201308, end: 201308
  2. LIPITOR [Concomitant]
     Indication: BLOOD CHOLESTEROL INCREASED
  3. MILOXICAM [Concomitant]
     Indication: ANTIINFLAMMATORY THERAPY
  4. TRAMADOL [Concomitant]
     Indication: PAIN
  5. SKELAXIN [Concomitant]
     Indication: PAIN
  6. ASPIRIN [Concomitant]
     Indication: ANTICOAGULANT THERAPY
  7. ALLEGRA [Concomitant]
     Indication: HYPERSENSITIVITY

REACTIONS (1)
  - Application site rash [Recovered/Resolved]
